FAERS Safety Report 9748867 (Version 3)
Quarter: 2014Q2

REPORT INFORMATION
  Report Type: Spontaneous
  Country: US (occurrence: US)
  Receive Date: 20131212
  Receipt Date: 20140619
  Transmission Date: 20141212
  Serious: Yes (Hospitalization, Other)
  Sender: FDA-Public Use
  Company Number: US-INCYTE CORPORATION-2013IN002059

PATIENT
  Age: 72 Year
  Sex: Male
  Weight: 90.7 kg

DRUGS (15)
  1. JAKAFI [Suspect]
     Indication: MYELOFIBROSIS
     Dosage: 15 MG, BID
     Route: 048
     Dates: start: 201205
  2. JAKAFI [Suspect]
     Dosage: 10 MG, BID
     Route: 048
     Dates: start: 20140211
  3. JAKAFI [Suspect]
     Dosage: 50 MG, BID
     Route: 048
  4. KLOR-CON [Concomitant]
  5. AMLODIPINE [Concomitant]
  6. FUROSEMIDE [Concomitant]
  7. SIMVASTATIN [Concomitant]
  8. TAMSULOSIN [Concomitant]
  9. FINASTERIDE [Concomitant]
  10. ASA [Concomitant]
  11. FISH OIL [Concomitant]
  12. ALPRAZOLAM [Concomitant]
  13. OXYCONTIN [Concomitant]
     Dosage: 30 MG, TID
     Route: 048
  14. FENTANYL PCH [Concomitant]
     Dosage: 25 MCG/HR EVERY THREE DAYS
  15. HYDROXYUREA [Concomitant]
     Dosage: 500 MG, QD

REACTIONS (19)
  - Upper gastrointestinal haemorrhage [Unknown]
  - Leukaemoid reaction [Unknown]
  - Blood product transfusion dependent [Unknown]
  - Thrombocytopenia [Unknown]
  - Diarrhoea [Not Recovered/Not Resolved]
  - Constipation [Not Recovered/Not Resolved]
  - Back pain [Unknown]
  - Pain in extremity [Not Recovered/Not Resolved]
  - Iron overload [Unknown]
  - General physical health deterioration [Unknown]
  - Asthenia [Unknown]
  - Fatigue [Unknown]
  - Dyspnoea [Unknown]
  - Palpitations [Unknown]
  - Arthralgia [Unknown]
  - Muscular weakness [Unknown]
  - Anxiety [Unknown]
  - Depression [Unknown]
  - Contusion [Unknown]
